FAERS Safety Report 6248983-1 (Version None)
Quarter: 2009Q2

REPORT INFORMATION
  Report Type: 
  Country: None (occurrence: None)
  Receive Date: 20090624
  Receipt Date: 20090624
  Transmission Date: 20091009
  Serious: Yes (Life-Threatening)
  Sender: FDA-Public Use
  Company Number: None

PATIENT

DRUGS (1)
  1. KEPPRA [Suspect]

REACTIONS (5)
  - CONTUSION [None]
  - CONVULSION [None]
  - DRUG INTERACTION [None]
  - MASS [None]
  - TRANSIENT ISCHAEMIC ATTACK [None]
